FAERS Safety Report 5288525-0 (Version None)
Quarter: 2007Q2

REPORT INFORMATION
  Report Type: 
  Country: None (occurrence: None)
  Receive Date: 20070405
  Receipt Date: 20070207
  Transmission Date: 20071010
  Serious: No
  Sender: FDA-Public Use
  Company Number: US-JNJFOC-20070202328

PATIENT
  Sex: Female
  Weight: 67.13 kg

DRUGS (3)
  1. INVEGA [Suspect]
     Route: 048
  2. INVEGA [Suspect]
     Indication: OBSESSIVE-COMPULSIVE DISORDER
     Route: 048
  3. ZOLOFT [Concomitant]
     Indication: ANXIETY
     Route: 048

REACTIONS (4)
  - ABNORMAL BEHAVIOUR [None]
  - DROOLING [None]
  - OCULAR HYPERAEMIA [None]
  - STUPOR [None]
